FAERS Safety Report 4282508-5 (Version None)
Quarter: 2004Q1

REPORT INFORMATION
  Report Type: 
  Country: None (occurrence: None)
  Receive Date: 20040129
  Receipt Date: 20040117
  Transmission Date: 20041129
  Serious: Yes (Hospitalization, Other)
  Sender: FDA-Public Use
  Company Number: 2003118945

PATIENT
  Age: 28 Year
  Sex: Male
  Weight: 68.0396 kg

DRUGS (5)
  1. VISTARIL [Suspect]
     Indication: ABDOMINAL PAIN
     Dosage: (QID), ORAL
     Route: 048
     Dates: start: 20031027, end: 20030101
  2. RABEPRAZOLE SODIUM (RABEPRAZOLE SODIUM) [Suspect]
     Indication: ILL-DEFINED DISORDER
     Dosage: ORAL
     Route: 048
  3. PARACETAMOL (PARACETAMOL) [Concomitant]
  4. MAALOX (MAGNESIUM HYDROXIDE, ALUMINIUM HYDROXIDE GEL) [Concomitant]
  5. MYLANTA (MAGNESIUM HYDROXIDE, ALUMINIUM HYDROXIDE GEL, DRIED, SIMETICO [Concomitant]

REACTIONS (4)
  - CHILLS [None]
  - DEHYDRATION [None]
  - LIVER FUNCTION TEST ABNORMAL [None]
  - RHABDOMYOLYSIS [None]
